FAERS Safety Report 6925461-5 (Version None)
Quarter: 2010Q3

REPORT INFORMATION
  Report Type: 
  Country: None (occurrence: None)
  Receive Date: 20100816
  Receipt Date: 20100804
  Transmission Date: 20110219
  Serious: Yes (Other)
  Sender: FDA-Public Use
  Company Number: PT-ROCHE-714393

PATIENT
  Age: 72 Year
  Sex: Female
  Weight: 63 kg

DRUGS (5)
  1. BONIVA [Suspect]
     Indication: OSTEOPOROSIS
     Route: 048
     Dates: start: 20100701
  2. LOVASTATIN [Concomitant]
     Dosage: DOSE:1 TAB IN THE EVENING. START DATE: 5/6 YEARS AGO  DRUG MEVLOR (LOVASTATIN) 20 MG TABLETS
     Route: 048
  3. ZURCAL [Concomitant]
     Indication: GASTRITIS
     Dosage: DOSE: 1 TAB IN THE EVENING START DATE: 5/6 YEARS AGO.
     Route: 048
  4. HERBESSER [Concomitant]
     Dosage: DOSE: 1 TAB IN THE EVENING START DATE: 5/6 YEARS AGO.
     Route: 048
  5. DYAZIDE [Concomitant]
     Dosage: DOSE: 1 TAB IN THE MORNING START DATE: 5/6 YEARS AGO.
     Route: 048

REACTIONS (3)
  - ABDOMINAL PAIN UPPER [None]
  - DECREASED APPETITE [None]
  - HYPERHIDROSIS [None]
